FAERS Safety Report 5215652-6 (Version None)
Quarter: 2007Q1

REPORT INFORMATION
  Report Type: 
  Country: None (occurrence: None)
  Receive Date: 20070123
  Receipt Date: 20070111
  Transmission Date: 20070707
  Serious: Yes (Death, Hospitalization)
  Sender: FDA-Public Use
  Company Number: FR-ROCHE-467825

PATIENT
  Age: 19 Year
  Sex: Female

DRUGS (7)
  1. CELLCEPT [Suspect]
     Indication: RENAL TRANSPLANT
     Dosage: DOSAGE REGIMEN REPORTED AS 2 DOSES IN THE MORNING AND 2 DOSES IN THE EVENING.
     Route: 048
     Dates: start: 20050716, end: 20061209
  2. TRIATEC [Suspect]
     Indication: DRUG USE FOR UNKNOWN INDICATION
     Dosage: DOSAGE REGIMEN REPORTED AS ONE DOSE IN THE MORNING AND ONE DOSE IN THE EVENING.
     Route: 048
  3. LERCAN [Suspect]
     Indication: DRUG USE FOR UNKNOWN INDICATION
     Dosage: DOSAGE REGIMEN REPORTED AS ONE DOSE IN THE MORNING.
     Route: 048
     Dates: end: 20061209
  4. RAPAMUNE [Suspect]
     Indication: DRUG USE FOR UNKNOWN INDICATION
     Route: 048
     Dates: start: 20050716, end: 20061209
  5. DETENSIEL [Suspect]
     Indication: DRUG USE FOR UNKNOWN INDICATION
     Dosage: DOSAGE REGIMEN REPORTED AS ONE DOSE IN THE MORNING.
     Route: 048
  6. COZAAR [Suspect]
     Indication: DRUG USE FOR UNKNOWN INDICATION
     Dosage: DOSAGE REGIMEN REPORTED AS ONE DOSE IN THE MORNING.
     Route: 048
  7. LUTERAN [Concomitant]
     Dosage: DOSAGE REGIMEN REPORTED AS ONE DOSE IN THE EVENING.

REACTIONS (1)
  - PULMONARY HYPERTENSION [None]
